FAERS Safety Report 6658067-6 (Version None)
Quarter: 2010Q1

REPORT INFORMATION
  Report Type: 
  Country: None (occurrence: None)
  Receive Date: 20100330
  Receipt Date: 20100324
  Transmission Date: 20100710
  Serious: Yes (Disabling)
  Sender: FDA-Public Use
  Company Number: JP-MERCK-1001USA03716

PATIENT
  Age: 70 Year
  Sex: Female
  Weight: 53 kg

DRUGS (5)
  1. PEPCID RPD [Suspect]
     Route: 048
     Dates: start: 20050524, end: 20091215
  2. DIOVAN [Suspect]
     Indication: HYPERTENSION
     Route: 048
     Dates: start: 20050419
  3. BASEN [Concomitant]
     Indication: DIABETES MELLITUS
     Route: 065
     Dates: start: 20061114
  4. CALBLOCK [Concomitant]
     Indication: HYPERTENSION
     Route: 065
     Dates: start: 20041206
  5. NATRIX [Concomitant]
     Indication: HYPERTENSION
     Route: 065
     Dates: start: 20050208

REACTIONS (1)
  - INTERSTITIAL LUNG DISEASE [None]
